FAERS Safety Report 17286720 (Version 3)
Quarter: 2020Q1

REPORT INFORMATION
  Report Type: Report from Study
  Country: None (occurrence: CA)
  Receive Date: 20200119
  Receipt Date: 20200214
  Transmission Date: 20200409
  Serious: Yes (Hospitalization)
  Sender: FDA-Public Use
  Company Number: CA-ABBVIE-20K-028-3235784-00

PATIENT
  Sex: Female

DRUGS (3)
  1. HUMIRA [Suspect]
     Active Substance: ADALIMUMAB
     Route: 058
  2. HUMIRA [Suspect]
     Active Substance: ADALIMUMAB
     Indication: HIDRADENITIS
     Route: 058
     Dates: start: 20151015, end: 20191206
  3. COLCHICINE. [Suspect]
     Active Substance: COLCHICINE
     Indication: GOUT
     Route: 065
     Dates: start: 2019

REACTIONS (5)
  - Renal failure [Recovered/Resolved]
  - Diarrhoea [Unknown]
  - Vomiting [Unknown]
  - Product prescribing error [Unknown]
  - Prerenal failure [Unknown]

NARRATIVE: CASE EVENT DATE: 2019
